FAERS Safety Report 6431914-9 (Version None)
Quarter: 2009Q4

REPORT INFORMATION
  Report Type: 
  Country: None (occurrence: None)
  Receive Date: 20091109
  Receipt Date: 20091029
  Transmission Date: 20100525
  Serious: Yes (Hospitalization)
  Sender: FDA-Public Use
  Company Number: US-BIOGENIDEC-2005BI021297

PATIENT
  Age: 32 Year
  Sex: Male
  Weight: 83 kg

DRUGS (6)
  1. AVONEX [Suspect]
     Indication: MULTIPLE SCLEROSIS
     Route: 030
     Dates: start: 20020101, end: 20030801
  2. AVONEX [Suspect]
     Route: 030
     Dates: start: 20030801, end: 20060707
  3. DEPAKOTE [Concomitant]
     Indication: GRAND MAL CONVULSION
     Dates: start: 19930101
  4. PREVACID [Concomitant]
     Indication: GASTRIC ULCER HAEMORRHAGE
     Dates: start: 19930101
  5. NITROFURANTOIN [Concomitant]
     Indication: URINARY TRACT INFECTION
     Dates: start: 19940101
  6. CHEMOTHERAPY NOS [Concomitant]
     Indication: MULTIPLE SCLEROSIS

REACTIONS (12)
  - BACK PAIN [None]
  - BALANCE DISORDER [None]
  - MENTAL IMPAIRMENT [None]
  - MOBILITY DECREASED [None]
  - MUSCLE FIBROSIS [None]
  - MUSCULAR WEAKNESS [None]
  - NERVOUSNESS [None]
  - OSTEONECROSIS [None]
  - PAIN IN EXTREMITY [None]
  - PROCEDURAL PAIN [None]
  - SURGERY [None]
  - URINARY INCONTINENCE [None]
